FAERS Safety Report 14238561 (Version 2)
Quarter: 2017Q4

REPORT INFORMATION
  Report Type: Report from Study
  Country: MX (occurrence: MX)
  Receive Date: 20171130
  Receipt Date: 20171229
  Transmission Date: 20180321
  Serious: Yes (Death)
  Sender: FDA-Public Use
  Company Number: PHHY2014MX151244

PATIENT
  Sex: Male

DRUGS (3)
  1. METFORMIN [Concomitant]
     Active Substance: METFORMIN HYDROCHLORIDE
     Indication: PRODUCT USED FOR UNKNOWN INDICATION
     Dosage: 850 MG, QD
     Route: 065
  2. GLIBENCLAMIDE [Concomitant]
     Active Substance: GLYBURIDE
     Indication: PRODUCT USED FOR UNKNOWN INDICATION
     Route: 065
  3. GLIVEC [Suspect]
     Active Substance: IMATINIB MESYLATE
     Indication: CHRONIC MYELOID LEUKAEMIA
     Dosage: 400 MG, QD (EVERY 24 HOURS)
     Route: 065
     Dates: start: 20100406

REACTIONS (12)
  - Renal injury [Fatal]
  - Asthenia [Unknown]
  - Memory impairment [Unknown]
  - Screaming [Unknown]
  - Renal failure [Fatal]
  - Chronic kidney disease [Fatal]
  - Gait disturbance [Unknown]
  - Crying [Unknown]
  - Dyskinesia [Unknown]
  - Fumbling [Unknown]
  - Blood urea increased [Fatal]
  - Creatinine renal clearance decreased [Fatal]
